FAERS Safety Report 4333609-4 (Version None)
Quarter: 2004Q2

REPORT INFORMATION
  Report Type: 
  Country: None (occurrence: None)
  Receive Date: 20040406
  Receipt Date: 20040322
  Transmission Date: 20050107
  Serious: Yes (Other)
  Sender: FDA-Public Use
  Company Number: 2004S1000841

PATIENT
  Age: 54 Year
  Sex: Male
  Weight: 90.7194 kg

DRUGS (3)
  1. EXTENDED PHENYTOIN SODIUM [Suspect]
     Indication: INNER EAR DISORDER
     Dosage: 100MG QD, ORAL
     Route: 048
     Dates: start: 19980101, end: 20040101
  2. DIAZEPAM [Concomitant]
  3. ACETAZOLAMIDE [Concomitant]

REACTIONS (2)
  - GYNAECOMASTIA [None]
  - TREATMENT NONCOMPLIANCE [None]
